FAERS Safety Report 5645239-2 (Version None)
Quarter: 2008Q1

REPORT INFORMATION
  Report Type: 
  Country: None (occurrence: None)
  Receive Date: 20080229
  Receipt Date: 20080220
  Transmission Date: 20080703
  Serious: Yes (Hospitalization, Other)
  Sender: FDA-Public Use
  Company Number: US-JNJFOC-20070502576

PATIENT
  Sex: Male
  Weight: 51.71 kg

DRUGS (22)
  1. TMC125 [Suspect]
     Route: 048
  2. TMC125 [Suspect]
     Indication: HIV INFECTION
     Route: 048
  3. PREZISTA [Suspect]
     Indication: HIV INFECTION
     Route: 048
  4. MK-0518 [Suspect]
     Indication: HIV INFECTION
     Route: 048
  5. TRUVADA [Suspect]
     Indication: HIV INFECTION
     Route: 048
  6. RITONAVIR [Suspect]
     Route: 048
  7. RITONAVIR [Suspect]
     Indication: HIV INFECTION
     Route: 048
  8. MARINOL [Concomitant]
     Indication: CACHEXIA
     Route: 048
  9. MARINOL [Concomitant]
     Indication: WEIGHT INCREASED
     Route: 048
  10. FAMVIR [Concomitant]
     Indication: HERPES SIMPLEX
     Route: 048
  11. AMITRIPTYLINE HCL [Concomitant]
     Indication: DEPRESSION
     Route: 048
  12. ZOVIRAX [Concomitant]
     Indication: HERPES SIMPLEX
     Route: 061
  13. VISTIDE [Concomitant]
     Route: 042
  14. VISTIDE [Concomitant]
     Indication: CYTOMEGALOVIRUS INFECTION
     Route: 042
  15. VALCYTE [Concomitant]
     Indication: CYTOMEGALOVIRUS INFECTION
     Route: 048
  16. VALCYTE [Concomitant]
     Indication: ANTIVIRAL PROPHYLAXIS
     Route: 048
  17. PROBENECID [Concomitant]
     Route: 048
  18. PROBENECID [Concomitant]
     Route: 048
  19. PEPTO-BISMOL [Concomitant]
     Indication: DIARRHOEA
     Route: 065
  20. ALTERNAGEL [Concomitant]
     Indication: DIARRHOEA
     Route: 065
  21. OPIUM [Concomitant]
     Indication: DIARRHOEA
     Route: 065
  22. LUNESTA [Concomitant]
     Indication: INSOMNIA
     Route: 048

REACTIONS (1)
  - MYCOBACTERIUM AVIUM COMPLEX IMMUNE RESTORATION DISEASE [None]
